FAERS Safety Report 5880912-2 (Version None)
Quarter: 2008Q3

REPORT INFORMATION
  Report Type: 
  Country: None (occurrence: None)
  Receive Date: 20080912
  Receipt Date: 20080613
  Transmission Date: 20090109
  Serious: No
  Sender: FDA-Public Use
  Company Number: US-ABBOTT-08P-163-0457144-00

PATIENT
  Sex: Female
  Weight: 135.45 kg

DRUGS (4)
  1. HUMIRA [Suspect]
     Indication: PSORIASIS
     Route: 058
     Dates: start: 20080604
  2. METFORMIN HCL [Concomitant]
     Indication: DIABETES MELLITUS
     Route: 048
  3. GLIPIZIDE [Concomitant]
     Indication: DIABETES MELLITUS
     Route: 048
  4. EXENATIDE [Concomitant]
     Indication: DIABETES MELLITUS

REACTIONS (3)
  - HEADACHE [None]
  - NAUSEA [None]
  - RHINORRHOEA [None]
